FAERS Safety Report 8879577 (Version 1)
Quarter: 2012Q4

REPORT INFORMATION
  Report Type: 
  Country: US (occurrence: US)
  Receive Date: 20121031
  Receipt Date: 20121031
  Transmission Date: 20130627
  Serious: No
  Sender: FDA-Public Use
  Company Number: US-B.I. PHARMACEUTICALS,INC./RIDGEFIELD-2012-BP-23055BP

PATIENT
  Sex: Male

DRUGS (18)
  1. PRADAXA [Suspect]
     Dosage: 300 mg
     Dates: start: 20111024, end: 20120122
  2. LISINOPRIL [Concomitant]
     Dosage: 5 mg
  3. METOPROLOL TARTRATE [Concomitant]
     Dosage: 12.5 mg
  4. MAX OXIDE [Concomitant]
     Dosage: 400 mg
  5. SIMVASTATIN [Concomitant]
     Dosage: 40 mg
  6. LACTULOSE [Concomitant]
     Route: 048
  7. KEPPRA [Concomitant]
     Dosage: 1000 mg
  8. XOPENEX [Concomitant]
     Route: 055
  9. RESTORIL [Concomitant]
     Dosage: 15 mg
  10. OMEPRAZOLE [Concomitant]
     Dosage: 40 mg
  11. SENNA [Concomitant]
     Route: 048
  12. ZOLOFT [Concomitant]
     Dosage: 100 mg
  13. SEROQUEL [Concomitant]
     Dosage: 100 mg
  14. FLOMAX [Concomitant]
     Dosage: 0.4 mg
  15. VITAMIN D [Concomitant]
     Dosage: 1000 U
  16. XANAX [Concomitant]
  17. NAPROXEN [Concomitant]
     Route: 048
  18. TYLENOL 8 HOUR [Concomitant]

REACTIONS (2)
  - Gastrointestinal haemorrhage [Recovered/Resolved]
  - Renal failure [Recovered/Resolved]
